FAERS Safety Report 23033250 (Version 5)
Quarter: 2023Q4

REPORT INFORMATION
  Report Type: Spontaneous
  Country: US (occurrence: US)
  Receive Date: 20231005
  Receipt Date: 20231201
  Transmission Date: 20240110
  Serious: No
  Sender: FDA-Public Use
  Company Number: US-PFIZER INC-PV202300162705

PATIENT
  Age: 1 Year
  Sex: Male

DRUGS (1)
  1. GENOTROPIN [Suspect]
     Active Substance: SOMATROPIN
     Dosage: 0.2 MG, DAILY, 7 DAYS/WEEK
     Dates: start: 20230925

REACTIONS (4)
  - Accidental exposure to product [Unknown]
  - Product label confusion [Unknown]
  - Injection site haemorrhage [Unknown]
  - Exposure via skin contact [Unknown]
